FAERS Safety Report 5259946-7 (Version None)
Quarter: 2007Q1

REPORT INFORMATION
  Report Type: 
  Country: None (occurrence: None)
  Receive Date: 20070309
  Receipt Date: 20070302
  Transmission Date: 20070707
  Serious: Yes (Life-Threatening, Hospitalization)
  Sender: FDA-Public Use
  Company Number: JP-JPN-A200700649

PATIENT
  Age: 75 Year
  Sex: Female
  Weight: 47 kg

DRUGS (10)
  1. VALTREX [Suspect]
     Indication: HERPES ZOSTER
     Dosage: 1G THREE TIMES PER DAY
     Route: 048
     Dates: start: 20070208, end: 20070212
  2. LUPRAC [Suspect]
     Indication: CARDIAC FAILURE
     Dosage: 4MG PER DAY
     Route: 048
     Dates: start: 20060601
  3. TAKEPRON [Concomitant]
     Dosage: 30MG PER DAY
     Route: 048
  4. NU-LOTAN [Concomitant]
     Indication: HYPERTENSION
     Dosage: 50MG PER DAY
     Route: 048
  5. ONEALFA [Concomitant]
     Dosage: .5MG PER DAY
     Route: 048
  6. MAALOX FAST BLOCKER [Concomitant]
     Dosage: 3.6G PER DAY
     Route: 048
  7. MEVALOTIN [Concomitant]
     Dosage: 5MG PER DAY
     Route: 048
  8. ALMARL [Concomitant]
     Indication: HYPERTENSION
     Dosage: 10MG PER DAY
     Route: 048
  9. CYANOCOBALAMIN [Concomitant]
     Dosage: 1500MG PER DAY
     Route: 048
  10. GASMOTIN [Concomitant]
     Dosage: 15MG PER DAY
     Route: 048

REACTIONS (7)
  - ABASIA [None]
  - DECREASED APPETITE [None]
  - DYSSTASIA [None]
  - HYPONATRAEMIA [None]
  - MALAISE [None]
  - MUSCULAR WEAKNESS [None]
  - RENAL TUBULAR DISORDER [None]
